FAERS Safety Report 17210819 (Version 3)
Quarter: 2020Q1

REPORT INFORMATION
  Report Type: Report from Study
  Country: US (occurrence: US)
  Receive Date: 20191227
  Receipt Date: 20200114
  Transmission Date: 20200409
  Serious: Yes (Hospitalization, Other)
  Sender: FDA-Public Use
  Company Number: US-GILEAD-2019-0444697

PATIENT
  Age: 16 Year
  Sex: Female

DRUGS (12)
  1. AZTREONAM LYSINE [Suspect]
     Active Substance: AZTREONAM LYSINE
     Indication: CYSTIC FIBROSIS
     Dosage: 75 MG, TID
     Route: 055
     Dates: start: 20141013
  2. CREON [Concomitant]
     Active Substance: PANCRELIPASE AMYLASE\PANCRELIPASE LIPASE\PANCRELIPASE PROTEASE
  3. CONCERTA [Concomitant]
     Active Substance: METHYLPHENIDATE HYDROCHLORIDE
  4. PULMOZYME [Concomitant]
     Active Substance: DORNASE ALFA
  5. TOBI [Concomitant]
     Active Substance: TOBRAMYCIN
  6. CLINDAMYCIN. [Concomitant]
     Active Substance: CLINDAMYCIN
  7. CIPROFLOXACIN. [Concomitant]
     Active Substance: CIPROFLOXACIN
  8. DRYSOL [Concomitant]
     Active Substance: ALUMINUM CHLORIDE
  9. ZOLOFT [Concomitant]
     Active Substance: SERTRALINE HYDROCHLORIDE
  10. SMZ-TMP [Concomitant]
     Active Substance: SULFAMETHOXAZOLE\TRIMETHOPRIM
  11. TRIKAFTA [Concomitant]
     Active Substance: ELEXACAFTOR\IVACAFTOR\TEZACAFTOR
  12. ADVAIR HFA [Concomitant]
     Active Substance: FLUTICASONE PROPIONATE\SALMETEROL XINAFOATE

REACTIONS (2)
  - Cystic fibrosis [Not Recovered/Not Resolved]
  - Pulmonary function test decreased [Unknown]

NARRATIVE: CASE EVENT DATE: 20191211
